FAERS Safety Report 12852477 (Version 2)
Quarter: 2017Q2

REPORT INFORMATION
  Report Type: Spontaneous
  Country: US (occurrence: US)
  Receive Date: 20161017
  Receipt Date: 20170421
  Transmission Date: 20170830
  Serious: Yes (Other)
  Sender: FDA-Public Use
  Company Number: US-BAYER-2016-197008

PATIENT
  Sex: Female

DRUGS (1)
  1. MIRENA [Suspect]
     Active Substance: LEVONORGESTREL
     Indication: CONTRACEPTION
     Dosage: 20 MCG/24HR, CONT
     Route: 015
     Dates: start: 20130218

REACTIONS (6)
  - Drug ineffective [Unknown]
  - Breast pain [Unknown]
  - Abdominal pain lower [Unknown]
  - Haemorrhage in pregnancy [Unknown]
  - Ectopic pregnancy with contraceptive device [Unknown]
  - Tenderness [Unknown]
